FAERS Safety Report 13598171 (Version 3)
Quarter: 2017Q3

REPORT INFORMATION
  Report Type: Spontaneous
  Country: US (occurrence: US)
  Receive Date: 20170531
  Receipt Date: 20170705
  Transmission Date: 20171127
  Serious: No
  Sender: FDA-Public Use
  Company Number: US-BAYER-2017-102476

PATIENT
  Age: 82 Year
  Sex: Male
  Weight: 68.03 kg

DRUGS (2)
  1. MIRALAX [Suspect]
     Active Substance: POLYETHYLENE GLYCOL 3350
     Indication: GASTROINTESTINAL DISORDER
     Dosage: UNK 1 DOSE, PRN
     Route: 048
     Dates: start: 20170428
  2. MIRALAX [Suspect]
     Active Substance: POLYETHYLENE GLYCOL 3350
     Indication: GASTROINTESTINAL DISORDER
     Dosage: UNK
     Route: 065
     Dates: start: 20170525

REACTIONS (6)
  - Inappropriate prescribing [Unknown]
  - Muscle strain [Not Recovered/Not Resolved]
  - Defaecation urgency [Unknown]
  - Movement disorder [Not Recovered/Not Resolved]
  - Myalgia [None]
  - Gastrointestinal motility disorder [Unknown]

NARRATIVE: CASE EVENT DATE: 20170629
